FAERS Safety Report 5008775-8 (Version None)
Quarter: 2006Q2

REPORT INFORMATION
  Report Type: 
  Country: None (occurrence: None)
  Receive Date: 20060518
  Receipt Date: 20060508
  Transmission Date: 20061013
  Serious: Yes (Other)
  Sender: FDA-Public Use
  Company Number: 29198

PATIENT
  Age: 16 Year
  Sex: Female

DRUGS (1)
  1. ALDARA [Suspect]
     Indication: CONDYLOMA ACUMINATUM
     Dosage: 1 SACHET, 3 TOTAL, TOPICAL
     Route: 061
     Dates: start: 20060502, end: 20060504

REACTIONS (5)
  - APPLICATION SITE EROSION [None]
  - APPLICATION SITE IRRITATION [None]
  - APPLICATION SITE ULCER [None]
  - INFLUENZA LIKE ILLNESS [None]
  - LEUKOCYTOSIS [None]
